FAERS Safety Report 17644847 (Version 1)
Quarter: 2020Q2

REPORT INFORMATION
  Report Type: Spontaneous
  Country: US (occurrence: US)
  Receive Date: 20200408
  Receipt Date: 20200408
  Transmission Date: 20200713
  Serious: Yes (Death)
  Sender: FDA-Public Use
  Company Number: None

PATIENT
  Age: 61 Year
  Sex: Female
  Weight: 91.26 kg

DRUGS (12)
  1. CLARITIN [Concomitant]
     Active Substance: LORATADINE
  2. METOPROLOL SUCC ER 25MG [Concomitant]
  3. EXEMESTANE. [Suspect]
     Active Substance: EXEMESTANE
  4. RITUXAN [Concomitant]
     Active Substance: RITUXIMAB
  5. LEVOTHYROXINE 75MCG [Concomitant]
     Active Substance: LEVOTHYROXINE
  6. ALLOPURINOL 300MG [Concomitant]
     Active Substance: ALLOPURINOL
  7. DAPSONE 100MG [Concomitant]
  8. LOSARTAN 50MG [Concomitant]
     Active Substance: LOSARTAN
  9. CALCIUM +D [Concomitant]
     Active Substance: CALCIUM\VITAMIN D
  10. SIMVASTATIN 20MG [Concomitant]
     Active Substance: SIMVASTATIN
  11. IMBRUVICA [Concomitant]
     Active Substance: IBRUTINIB
  12. SALINE NS [Concomitant]

REACTIONS (1)
  - Death [None]

NARRATIVE: CASE EVENT DATE: 20200402
